FAERS Safety Report 7451699-7 (Version None)
Quarter: 2011Q2

REPORT INFORMATION
  Report Type: 
  Country: None (occurrence: None)
  Receive Date: 20110502
  Receipt Date: 20100729
  Transmission Date: 20111010
  Serious: No
  Sender: FDA-Public Use
  Company Number: US-ASTRAZENECA-2010SE35498

PATIENT
  Sex: Female
  Weight: 56.7 kg

DRUGS (4)
  1. SYNTHROID [Concomitant]
  2. LUNESTA [Concomitant]
  3. ALLEGRA [Concomitant]
  4. NEXIUM [Suspect]
     Indication: HELICOBACTER INFECTION
     Route: 048

REACTIONS (2)
  - DRUG DOSE OMISSION [None]
  - PRURITUS GENERALISED [None]
